FAERS Safety Report 8803186 (Version 4)
Quarter: 2015Q1

REPORT INFORMATION
  Report Type: Report from Study
  Country: US (occurrence: US)
  Receive Date: 20120924
  Receipt Date: 20150302
  Transmission Date: 20150721
  Serious: Yes (Death)
  Sender: FDA-Public Use
  Company Number: US-ROCHE-1092347

PATIENT
  Sex: Female

DRUGS (15)
  1. AVASTIN [Suspect]
     Active Substance: BEVACIZUMAB
     Indication: METASTASES TO OVARY
  2. 5-FLUOROURACIL [Concomitant]
     Active Substance: FLUOROURACIL
     Dosage: CONTINUOUS INTRAVENOUS INFUSION
     Route: 042
  3. LEUCOVORIN [Concomitant]
     Active Substance: LEUCOVORIN
     Route: 042
  4. 5-FLUOROURACIL [Concomitant]
     Active Substance: FLUOROURACIL
     Route: 042
  5. ATIVAN [Concomitant]
     Active Substance: LORAZEPAM
     Dosage: AS PER NEED
     Route: 065
  6. AVASTIN [Suspect]
     Active Substance: BEVACIZUMAB
     Indication: SMALL INTESTINE CARCINOMA
     Route: 042
     Dates: start: 20060821
  7. ALOXI [Concomitant]
     Active Substance: PALONOSETRON HYDROCHLORIDE
     Route: 042
  8. OXALIPLATIN. [Concomitant]
     Active Substance: OXALIPLATIN
     Route: 042
  9. OXALIPLATIN. [Concomitant]
     Active Substance: OXALIPLATIN
     Route: 042
  10. OXALIPLATIN. [Concomitant]
     Active Substance: OXALIPLATIN
     Route: 042
  11. 5-FLUOROURACIL [Concomitant]
     Active Substance: FLUOROURACIL
     Route: 042
  12. 5-FLUOROURACIL [Concomitant]
     Active Substance: FLUOROURACIL
     Dosage: CONTINUOUS INTRAVENOUS INFUSION
     Route: 042
  13. TYLENOL [Concomitant]
     Active Substance: ACETAMINOPHEN
  14. DECADRON [Concomitant]
     Active Substance: DEXAMETHASONE
     Route: 042
  15. LEUCOVORIN [Concomitant]
     Active Substance: LEUCOVORIN
     Route: 042

REACTIONS (11)
  - Death [Fatal]
  - Neurotoxicity [Unknown]
  - Fatigue [Unknown]
  - Pain [Unknown]
  - Anxiety [Unknown]
  - Dizziness [Unknown]
  - Asthenia [Unknown]
  - Nausea [Recovered/Resolved]
  - Headache [Unknown]
  - Appetite disorder [Unknown]
  - Off label use [Unknown]
